FAERS Safety Report 17904506 (Version 1)
Quarter: 2020Q2

REPORT INFORMATION
  Report Type: Spontaneous
  Country: ES (occurrence: ES)
  Receive Date: 20200617
  Receipt Date: 20200617
  Transmission Date: 20200714
  Serious: Yes (Hospitalization)
  Sender: FDA-Public Use
  Company Number: ES-TEVA-2020-ES-1455148

PATIENT
  Age: 43 Year
  Sex: Female

DRUGS (7)
  1. HIGROTONA 50 MG COMPRIMIDOS , 30 COMPRIMIDOS [Interacting]
     Active Substance: CHLORTHALIDONE
     Indication: HYPERTENSION
     Dosage: 50 MG
     Route: 048
     Dates: start: 20200426, end: 20200512
  2. PREGABALINA (3897A) [Interacting]
     Active Substance: PREGABALIN
     Dosage: 150 MG
     Route: 048
     Dates: start: 201901, end: 20200512
  3. ENALAPRIL MALEATO (2142MA) [Suspect]
     Active Substance: ENALAPRIL MALEATE
     Indication: HYPERTENSION
     Dosage: 10 MG
     Route: 048
     Dates: start: 202001, end: 20200512
  4. FUROSEMIDA (1615A) [Interacting]
     Active Substance: FUROSEMIDE
     Dosage: 40 MG
     Route: 048
     Dates: start: 201909, end: 20200512
  5. OP3063 - MELADISPERT FORTE MELATONINA 1,9 MG LIBERACI?N PROLONGADA (DI [Concomitant]
     Indication: INSOMNIA
     Dosage: 1.9 MG
     Route: 048
     Dates: start: 20200505, end: 20200512
  6. NAPROXENO (2002A) [Interacting]
     Active Substance: NAPROXEN
     Indication: INTERVERTEBRAL DISC DISORDER
     Dosage: 500 MG
     Route: 048
     Dates: start: 201910, end: 20200512
  7. MIRTAZAPINA (2704A) [Concomitant]
     Active Substance: MIRTAZAPINE
     Indication: ANXIETY DISORDER
     Dosage: 30 MG
     Route: 048
     Dates: start: 201912, end: 20200505

REACTIONS (2)
  - Acute kidney injury [Recovering/Resolving]
  - Drug interaction [Unknown]

NARRATIVE: CASE EVENT DATE: 20200512
